FAERS Safety Report 20643535 (Version 1)
Quarter: 2022Q1

REPORT INFORMATION
  Report Type: Spontaneous
  Country: US (occurrence: None)
  Receive Date: 20220327
  Receipt Date: 20220327
  Transmission Date: 20220424
  Serious: Yes (Disabling)
  Sender: FDA-Public Use
  Company Number: None

PATIENT
  Age: 37 Year
  Sex: Female
  Weight: 84.6 kg

DRUGS (1)
  1. BAMLANIVIMAB\ETESEVIMAB [Suspect]
     Active Substance: BAMLANIVIMAB\ETESEVIMAB
     Indication: COVID-19
     Dosage: OTHER FREQUENCY : ONE TIME INFUSION;?
     Route: 042
     Dates: start: 20211202, end: 20211202

REACTIONS (8)
  - Heart rate increased [None]
  - Blood pressure increased [None]
  - Fatigue [None]
  - Headache [None]
  - Erythema [None]
  - Rosacea [None]
  - Migraine [None]
  - Sinusitis [None]

NARRATIVE: CASE EVENT DATE: 20211202
